FAERS Safety Report 7725022-4 (Version None)
Quarter: 2011Q3

REPORT INFORMATION
  Report Type: 
  Country: None (occurrence: None)
  Receive Date: 20110901
  Receipt Date: 20110825
  Transmission Date: 20111222
  Serious: Yes (Hospitalization)
  Sender: FDA-Public Use
  Company Number: US-BAYER-2011-080078

PATIENT
  Age: 24 Year
  Sex: Female
  Weight: 68.027 kg

DRUGS (3)
  1. +#8220;SOME TYPE OF MEDICATION FOR REFLUX SYMPTOMS.+#8221; [Concomitant]
  2. YASMIN [Suspect]
     Indication: CONTRACEPTION
     Dosage: UNK
     Dates: start: 20031201, end: 20041101
  3. PRENATAL VITAMINS [VIT C,B5,B12,D2,B3,B6,RETINOL PALMIT,B2,B1 MONO [Concomitant]

REACTIONS (3)
  - BILIARY COLIC [None]
  - CHOLECYSTITIS CHRONIC [None]
  - CHOLELITHIASIS [None]
